FAERS Safety Report 10871446 (Version 5)
Quarter: 2015Q3

REPORT INFORMATION
  Report Type: Spontaneous
  Country: US (occurrence: PH)
  Receive Date: 20150226
  Receipt Date: 20150804
  Transmission Date: 20151125
  Serious: Yes (Hospitalization, Congenital Anomaly)
  Sender: FDA-Public Use
  Company Number: US-PFIZER INC-2015069795

PATIENT
  Sex: Male

DRUGS (1)
  1. DEPO-PROVERA [Suspect]
     Active Substance: MEDROXYPROGESTERONE ACETATE
     Indication: CONTRACEPTION
     Dosage: 150 MG, SINGLE
     Route: 064
     Dates: start: 20140619

REACTIONS (5)
  - Dyspnoea [Unknown]
  - Talipes [Unknown]
  - Maternal exposure during pregnancy [Unknown]
  - Foetal malformation [Unknown]
  - Staphylococcal infection [Unknown]
